FAERS Safety Report 9045640 (Version 1)
Quarter: 2013Q1

REPORT INFORMATION
  Report Type: Report from Study
  Country: US (occurrence: US)
  Receive Date: 20130131
  Receipt Date: 20130131
  Transmission Date: 20140127
  Serious: No
  Sender: FDA-Public Use
  Company Number: US-ABBOTT-12P-163-1011535-00

PATIENT
  Age: 58 Year
  Sex: Female

DRUGS (7)
  1. HUMIRA [Suspect]
     Indication: PSORIATIC ARTHROPATHY
     Dates: start: 201207
  2. PREMPRO [Concomitant]
     Indication: HORMONE REPLACEMENT THERAPY
  3. LEVOTHYROXINE [Concomitant]
     Indication: PRODUCT USED FOR UNKNOWN INDICATION
  4. XANAX [Concomitant]
     Indication: PRODUCT USED FOR UNKNOWN INDICATION
  5. OCUVITE [Concomitant]
     Indication: VITAMIN SUPPLEMENTATION
  6. BIOTIN [Concomitant]
     Indication: VITAMIN SUPPLEMENTATION
  7. CYMBALTA [Concomitant]
     Indication: DEPRESSION

REACTIONS (1)
  - Fatigue [Recovered/Resolved]
